FAERS Safety Report 5208936-9 (Version None)
Quarter: 2007Q1

REPORT INFORMATION
  Report Type: 
  Country: None (occurrence: None)
  Receive Date: 20070111
  Receipt Date: 20070111
  Transmission Date: 20070707
  Serious: Yes (Other)
  Sender: FDA-Public Use
  Company Number: None

PATIENT
  Age: 58 Year
  Sex: Male
  Weight: 56.7 kg

DRUGS (1)
  1. LISINOPRIL [Suspect]
     Indication: DIABETIC NEPHROPATHY
     Dosage: 5MG, 5 MG QD, ORAL
     Route: 048
     Dates: start: 20061207, end: 20061226

REACTIONS (2)
  - BLOOD CREATININE INCREASED [None]
  - TREMOR [None]
